FAERS Safety Report 11250328 (Version 1)
Quarter: 2015Q3

REPORT INFORMATION
  Report Type: Spontaneous
  Country: US (occurrence: US)
  Receive Date: 20150708
  Receipt Date: 20150708
  Transmission Date: 20151125
  Serious: Yes (Hospitalization, Other)
  Sender: FDA-Public Use
  Company Number: US-ELI_LILLY_AND_COMPANY-US200910004379

PATIENT
  Age: 17 Year
  Sex: Male
  Weight: 81.63 kg

DRUGS (2)
  1. AMINO ACIDS NOS [Concomitant]
     Indication: MUSCLE BUILDING THERAPY
  2. SYMBYAX [Suspect]
     Active Substance: FLUOXETINE HYDROCHLORIDE\OLANZAPINE
     Indication: DEPRESSION
     Dosage: 2 D/F, DAILY (1/D)
     Dates: start: 20090919, end: 20090928

REACTIONS (2)
  - Alanine aminotransferase increased [Unknown]
  - Liver function test abnormal [Unknown]

NARRATIVE: CASE EVENT DATE: 20090923
